FAERS Safety Report 7903180-6 (Version None)
Quarter: 2011Q4

REPORT INFORMATION
  Report Type: 
  Country: None (occurrence: None)
  Receive Date: 20111108
  Receipt Date: 20111108
  Transmission Date: 20120403
  Serious: Yes (Other)
  Sender: FDA-Public Use
  Company Number: None

PATIENT
  Sex: Male
  Weight: 77.2022 kg

DRUGS (3)
  1. FLUOXETINE HCL [Concomitant]
  2. SEROQUEL [Suspect]
     Indication: MAJOR DEPRESSION
     Dosage: 25MG TID PO
     Route: 048
     Dates: start: 20110630, end: 20111026
  3. HYDROXYZINE [Concomitant]

REACTIONS (1)
  - PHOTOPSIA [None]
